FAERS Safety Report 23286033 (Version 1)
Quarter: 2023Q4

REPORT INFORMATION
  Report Type: Spontaneous
  Country: US (occurrence: US)
  Receive Date: 20231212
  Receipt Date: 20231212
  Transmission Date: 20240110
  Serious: Yes (Other)
  Sender: FDA-Public Use
  Company Number: US-BRISTOL-MYERS SQUIBB COMPANY-2023-178913

PATIENT
  Age: 86 Year
  Sex: Male
  Weight: 76.66 kg

DRUGS (5)
  1. REVLIMID [Suspect]
     Active Substance: LENALIDOMIDE
     Indication: Plasma cell myeloma
     Dosage: FREQUENCY: 21/28
     Route: 048
     Dates: start: 20230927
  2. MYRBETRIQ [Concomitant]
     Active Substance: MIRABEGRON
     Indication: Product used for unknown indication
     Dosage: FREQUENCY: TAKE 1 CAPSULE DAILY.
     Route: 048
  3. ALFUZOSIN [Concomitant]
     Active Substance: ALFUZOSIN
     Indication: Product used for unknown indication
     Dosage: FREQUENCY: 1 PO DAILY
     Route: 048
  4. VITAMIN D3 [Concomitant]
     Active Substance: CHOLECALCIFEROL
     Indication: Product used for unknown indication
     Dosage: FREQUENCY: 1 PO DAILY
     Route: 048
  5. MAG [MAGNESIUM CHLORIDE] [Concomitant]
     Indication: Product used for unknown indication
     Dosage: OX  FREQUENCY: 1 PO DAILY
     Route: 048

REACTIONS (1)
  - Rash [Recovered/Resolved]

NARRATIVE: CASE EVENT DATE: 20231031
